FAERS Safety Report 16153749 (Version 2)
Quarter: 2019Q2

REPORT INFORMATION
  Report Type: Spontaneous
  Country: US (occurrence: US)
  Receive Date: 20190403
  Receipt Date: 20190514
  Transmission Date: 20190711
  Serious: No
  Sender: FDA-Public Use
  Company Number: US-PFIZER INC-2019133273

PATIENT
  Age: 74 Year
  Sex: Male

DRUGS (4)
  1. TAMSULOSIN [Interacting]
     Active Substance: TAMSULOSIN
     Dosage: 0.8 MG, 1X/DAY
     Dates: start: 2018
  2. FINASTERIDE. [Concomitant]
     Active Substance: FINASTERIDE
     Indication: PROSTATE CANCER
     Dosage: 5 MG, 1X/DAY
     Dates: start: 2018
  3. TAMSULOSIN [Interacting]
     Active Substance: TAMSULOSIN
     Indication: MICTURITION URGENCY
     Dosage: 4 MG, 2X/DAY
     Route: 048
  4. ADVIL [Suspect]
     Active Substance: IBUPROFEN
     Dosage: 200 MG, UNK

REACTIONS (1)
  - Potentiating drug interaction [Unknown]

NARRATIVE: CASE EVENT DATE: 201901
